FAERS Safety Report 9433794 (Version 1)
Quarter: 2013Q3

REPORT INFORMATION
  Report Type: Report from Study
  Country: US (occurrence: US)
  Receive Date: 20130731
  Receipt Date: 20130731
  Transmission Date: 20140515
  Serious: Yes (Other)
  Sender: FDA-Public Use
  Company Number: PHEH2013US013153

PATIENT
  Sex: Female
  Weight: 97.96 kg

DRUGS (6)
  1. GILENYA [Suspect]
     Indication: MULTIPLE SCLEROSIS
     Dosage: 0.5 MG, QD
     Route: 048
     Dates: start: 20111227
  2. LEVETIRACETAM [Concomitant]
     Dosage: 500 MG, QD
     Route: 048
  3. MULTIVIT//VITAMINS NOS [Concomitant]
     Dosage: 1 DF, QD
     Route: 048
  4. TOPIRAMATE [Concomitant]
     Dosage: 250 MG, QD
     Route: 048
  5. LAMICTAL [Concomitant]
     Dosage: 50 MG, BID
     Route: 048
  6. VITAMIN D [Concomitant]
     Dosage: 6000 IU, QW

REACTIONS (3)
  - Left ventricular hypertrophy [Unknown]
  - Left atrial dilatation [Unknown]
  - Myocardial ischaemia [Unknown]
